FAERS Safety Report 5483027-0 (Version None)
Quarter: 2007Q4

REPORT INFORMATION
  Report Type: 
  Country: None (occurrence: None)
  Receive Date: 20071011
  Receipt Date: 20071008
  Transmission Date: 20080405
  Serious: Yes (Hospitalization, Other)
  Sender: FDA-Public Use
  Company Number: US-SHR-US-2007-038043

PATIENT
  Sex: Female

DRUGS (1)
  1. MIRENA [Suspect]
     Dosage: 20 A?G, CONT
     Route: 015

REACTIONS (5)
  - BREAST TENDERNESS [None]
  - CONVULSION [None]
  - DYSPAREUNIA [None]
  - HYPERSENSITIVITY [None]
  - OVARIAN CYST [None]
